FAERS Safety Report 4358177-2 (Version None)
Quarter: 2004Q2

REPORT INFORMATION
  Report Type: 
  Country: None (occurrence: None)
  Receive Date: 20040511
  Receipt Date: 20040502
  Transmission Date: 20050107
  Serious: Yes (Other)
  Sender: FDA-Public Use
  Company Number: 2004029598

PATIENT
  Age: 65 Year
  Sex: Female
  Weight: 47.6277 kg

DRUGS (3)
  1. NEURONTIN [Suspect]
     Indication: PAIN IN EXTREMITY
     Dosage: 900 MG (300 MG , TID), ORAL
     Route: 048
     Dates: start: 20040401
  2. PAROXETINE HYDROCHLORIED (PAROXETINE HYDROCHLORIDE) [Concomitant]
  3. DRUG USED IN DIABETES 9DRUG USED IN DIABETES) [Concomitant]

REACTIONS (4)
  - CONDITION AGGRAVATED [None]
  - OEDEMA PERIPHERAL [None]
  - POOR PERIPHERAL CIRCULATION [None]
  - SKIN DISCOLOURATION [None]
